FAERS Safety Report 9692257 (Version 1)
Quarter: 2013Q4

REPORT INFORMATION
  Report Type: Spontaneous
  Country: US (occurrence: US)
  Receive Date: 20131118
  Receipt Date: 20131118
  Transmission Date: 20140711
  Serious: Yes (Other)
  Sender: FDA-Public Use
  Company Number: US-BRISTOL-MYERS SQUIBB COMPANY-19797604

PATIENT
  Age: 80 Year
  Sex: Male
  Weight: 81.63 kg

DRUGS (11)
  1. ELIQUIS [Suspect]
  2. SYNTHROID [Concomitant]
  3. ARICEPT [Concomitant]
  4. KLOR-CON [Concomitant]
  5. PLAVIX [Concomitant]
  6. LIPITOR [Concomitant]
  7. DIOVAN [Concomitant]
  8. LOTREL [Concomitant]
  9. FUROSEMIDE [Concomitant]
  10. METOPROLOL [Concomitant]
  11. CLONIDINE [Concomitant]

REACTIONS (1)
  - Metastases to liver [Unknown]
